FAERS Safety Report 15590304 (Version 1)
Quarter: 2018Q4

REPORT INFORMATION
  Report Type: Spontaneous
  Country: FR (occurrence: FR)
  Receive Date: 20181106
  Receipt Date: 20181106
  Transmission Date: 20190205
  Serious: Yes (Other)
  Sender: FDA-Public Use
  Company Number: FR-MYLANLABS-2018M1082409

PATIENT

DRUGS (3)
  1. CISPLATIN. [Suspect]
     Active Substance: CISPLATIN
     Indication: NON-SMALL CELL LUNG CANCER
     Dosage: 120 MG/M2, AT D1, D28, D70
     Route: 065
  2. VINORELBINE [Suspect]
     Active Substance: VINORELBINE\VINORELBINE TARTRATE
     Indication: NON-SMALL CELL LUNG CANCER
     Dosage: 25 MG/M2, PER WEEK DURING THE FIRST 4 MONTHS
     Route: 042
  3. MITOMYCIN. [Suspect]
     Active Substance: MITOMYCIN
     Indication: NON-SMALL CELL LUNG CANCER
     Dosage: 8 MG/M2, AT D1, D28, D70
     Route: 042

REACTIONS (1)
  - Bronchospasm [Recovered/Resolved]
